FAERS Safety Report 22649311 (Version 1)
Quarter: 2023Q2

REPORT INFORMATION
  Report Type: Spontaneous
  Country: US (occurrence: None)
  Receive Date: 20230626
  Receipt Date: 20230626
  Transmission Date: 20230722
  Serious: Yes (Hospitalization)
  Sender: FDA-Public Use
  Company Number: None

PATIENT
  Age: 76 Year
  Sex: Female

DRUGS (1)
  1. ENBREL [Suspect]
     Active Substance: ETANERCEPT
     Indication: Rheumatoid arthritis
     Route: 058
     Dates: start: 201606

REACTIONS (5)
  - Clavicle fracture [None]
  - Therapy interrupted [None]
  - Fall [None]
  - Back injury [None]
  - Influenza [None]

NARRATIVE: CASE EVENT DATE: 20230322
